FAERS Safety Report 13871139 (Version 2)
Quarter: 2017Q3

REPORT INFORMATION
  Report Type: Spontaneous
  Country: RU (occurrence: RU)
  Receive Date: 20170816
  Receipt Date: 20170919
  Transmission Date: 20171127
  Serious: Yes (Other)
  Sender: FDA-Public Use
  Company Number: RU-ROCHE-1974992

PATIENT
  Sex: Female

DRUGS (3)
  1. DOCETAXEL. [Concomitant]
     Active Substance: DOCETAXEL
  2. TRASTUZUMAB. [Suspect]
     Active Substance: TRASTUZUMAB
     Indication: BREAST CANCER
     Dosage: 1 COURSE ON SCHEME: DOCETAXEL + TRASTUZUMAB?4 COURSES ON SCHEME: TAXOTERE + TRASTUZUMAB
     Route: 065
  3. TAXOTERE [Concomitant]
     Active Substance: DOCETAXEL

REACTIONS (7)
  - Somnolence [Recovered/Resolved]
  - Brain oedema [Recovered/Resolved]
  - Aqueductal stenosis [Recovered/Resolved]
  - Hydrocephalus [Recovered/Resolved]
  - Stupor [Recovered/Resolved]
  - Headache [Recovered/Resolved]
  - Vomiting [Recovered/Resolved]
